FAERS Safety Report 23951060 (Version 1)
Quarter: 2024Q2

REPORT INFORMATION
  Report Type: Spontaneous
  Country: RO (occurrence: RO)
  Receive Date: 20240607
  Receipt Date: 20240607
  Transmission Date: 20240715
  Serious: Yes (Life-Threatening, Other)
  Sender: FDA-Public Use
  Company Number: None

PATIENT
  Age: 78 Year
  Sex: Male

DRUGS (6)
  1. OXALIPLATIN [Suspect]
     Active Substance: OXALIPLATIN
     Indication: Gastric cancer
     Route: 042
     Dates: start: 20240514, end: 20240514
  2. OXALIPLATIN [Suspect]
     Active Substance: OXALIPLATIN
     Indication: Rectosigmoid cancer
  3. ACETAMINOPHEN [Concomitant]
     Active Substance: ACETAMINOPHEN
     Indication: Premedication
     Dosage: 1 G -  ONE VIAL
     Dates: start: 20240514, end: 20240514
  4. HIDROCORTIZON HF [Concomitant]
     Indication: Premedication
     Dosage: 100 MG - ONE VIAL
     Dates: start: 20240514, end: 20240514
  5. CALCIUM GLUCONATE [Concomitant]
     Active Substance: CALCIUM GLUCONATE
     Indication: Premedication
     Dosage: ONE VIAL
     Dates: start: 20240514, end: 20240514
  6. ALGOCALMIN 1 g/2 ml [Concomitant]
     Indication: Premedication
     Dosage: ONE VIAL
     Dates: start: 20240514, end: 20240514

REACTIONS (1)
  - Anaphylactic reaction [Recovered/Resolved]

NARRATIVE: CASE EVENT DATE: 20240514
